FAERS Safety Report 16877165 (Version 1)
Quarter: 2019Q4

REPORT INFORMATION
  Report Type: Spontaneous
  Country: US (occurrence: US)
  Receive Date: 20191002
  Receipt Date: 20191002
  Transmission Date: 20200122
  Serious: Yes (Other)
  Sender: FDA-Public Use
  Company Number: US-HIKMA PHARMACEUTICALS USA INC.-US-H14001-19-05134

PATIENT
  Age: 65 Year
  Sex: Female

DRUGS (1)
  1. LITHIUM. [Suspect]
     Active Substance: LITHIUM
     Indication: BIPOLAR DISORDER
     Dosage: AT NIGHT.
     Route: 065
     Dates: end: 201303

REACTIONS (5)
  - Chronic kidney disease [Unknown]
  - Hyperparathyroidism [Recovered/Resolved]
  - Nephrogenic diabetes insipidus [Unknown]
  - Goitre [Unknown]
  - Renal tubular injury [Unknown]

NARRATIVE: CASE EVENT DATE: 201303
